FAERS Safety Report 25100832 (Version 4)
Quarter: 2025Q4

REPORT INFORMATION
  Report Type: Spontaneous
  Country: SG (occurrence: SG)
  Receive Date: 20250320
  Receipt Date: 20251211
  Transmission Date: 20260118
  Serious: Yes (Other)
  Sender: DAIICHI
  Company Number: SG-DSJP-DS-2025-129944-SG

PATIENT
  Age: 62 Year
  Sex: Female

DRUGS (1)
  1. TRASTUZUMAB DERUXTECAN [Suspect]
     Active Substance: TRASTUZUMAB DERUXTECAN
     Indication: Adenocarcinoma of the cervix
     Dosage: 5.4 MG/KG WITH DOSING INTERVALS ? 21 DAYS APART
     Route: 065

REACTIONS (2)
  - Embolism venous [Unknown]
  - Diarrhoea [Recovering/Resolving]
